FAERS Safety Report 4394485-7 (Version None)
Quarter: 2004Q3

REPORT INFORMATION
  Report Type: 
  Country: None (occurrence: None)
  Receive Date: 20040707
  Receipt Date: 20040625
  Transmission Date: 20050211
  Serious: Yes (Death)
  Sender: FDA-Public Use
  Company Number: 04P-163-0259172-00

PATIENT
  Age: 58 Year
  Sex: Male

DRUGS (2)
  1. WARFARIN (WAFARIN SODIUM) (WARFARIN SODIUM) [Suspect]
     Indication: VENOUS THROMBOSIS LIMB
     Dosage: 10 MG PER DAY; ON DAY NINE -
  2. UNFRACTIONATED HEPARIN [Concomitant]

REACTIONS (4)
  - FIBRIN DEGRADATION PRODUCTS INCREASED [None]
  - SEPSIS [None]
  - SKIN NECROSIS [None]
  - SKIN ULCER [None]
